FAERS Safety Report 8613719-3 (Version None)
Quarter: 2012Q3

REPORT INFORMATION
  Report Type: 
  Country: None (occurrence: None)
  Receive Date: 20120823
  Receipt Date: 20120813
  Transmission Date: 20120928
  Serious: Yes (Other)
  Sender: FDA-Public Use
  Company Number: IL-BIOGENIDEC-2012BI032385

PATIENT
  Age: 19 Year
  Sex: Male

DRUGS (7)
  1. MODAFINIL [Concomitant]
  2. COPAXONE [Concomitant]
     Indication: MULTIPLE SCLEROSIS
     Dates: start: 20120601, end: 20120701
  3. FAMPRIDINE [Concomitant]
  4. AVONEX [Suspect]
     Indication: MULTIPLE SCLEROSIS
     Route: 030
     Dates: start: 20120301, end: 20120601
  5. AVONEX [Suspect]
     Route: 030
     Dates: start: 20120701
  6. MEDICAL CANNABIS [Concomitant]
  7. CYCLOPHOSPHAMIDE [Concomitant]
     Dates: start: 20120101

REACTIONS (2)
  - HIV INFECTION [None]
  - LIVER FUNCTION TEST ABNORMAL [None]
